FAERS Safety Report 5319738-7 (Version None)
Quarter: 2007Q2

REPORT INFORMATION
  Report Type: 
  Country: None (occurrence: None)
  Receive Date: 20070502
  Receipt Date: 20070418
  Transmission Date: 20071010
  Serious: Yes (Death)
  Sender: FDA-Public Use
  Company Number: A-US2007-15079

PATIENT
  Age: 10 Year
  Sex: Male
  Weight: 33 kg

DRUGS (6)
  1. VENTAVIS [Suspect]
     Indication: PULMONARY HYPERTENSION
     Dates: start: 20070411, end: 20070413
  2. SILDENAFIL CITRATE [Concomitant]
  3. WARFARIN SODIUM [Concomitant]
  4. LANITOP (METILDIGOXIN) [Concomitant]
  5. FUROSEMIDE [Concomitant]
  6. SPIRONOLACTONE [Concomitant]

REACTIONS (1)
  - MYOCARDIAL INFARCTION [None]
